FAERS Safety Report 7029278-5 (Version None)
Quarter: 2010Q4

REPORT INFORMATION
  Report Type: 
  Country: None (occurrence: None)
  Receive Date: 20101005
  Receipt Date: 20100920
  Transmission Date: 20110411
  Serious: Yes (Other)
  Sender: FDA-Public Use
  Company Number: PHHY2010US63191

PATIENT

DRUGS (1)
  1. EXJADE [Suspect]
     Dosage: 2000 MG, QD
     Route: 048

REACTIONS (4)
  - EAR DISORDER [None]
  - EAR PAIN [None]
  - PYREXIA [None]
  - TOOTHACHE [None]
